FAERS Safety Report 22366148 (Version 1)
Quarter: 2023Q2

REPORT INFORMATION
  Report Type: Spontaneous
  Country: CA (occurrence: None)
  Receive Date: 20230524
  Receipt Date: 20230524
  Transmission Date: 20230721
  Serious: Yes (Disabling)
  Sender: FDA-Public Use
  Company Number: None

PATIENT
  Age: 39 Year
  Sex: Female

DRUGS (2)
  1. COTAZYM [Suspect]
     Active Substance: PANCRELIPASE AMYLASE\PANCRELIPASE LIPASE\PANCRELIPASE PROTEASE
     Indication: Pancreatic failure
  2. RIBAVIRIN [Suspect]
     Active Substance: RIBAVIRIN

REACTIONS (2)
  - Zoonotic bacterial infection [None]
  - Hepatitis E virus test positive [None]

NARRATIVE: CASE EVENT DATE: 20210708
